FAERS Safety Report 6456146-X (Version None)
Quarter: 2009Q4

REPORT INFORMATION
  Report Type: 
  Country: None (occurrence: None)
  Receive Date: 20091124
  Receipt Date: 20091124
  Transmission Date: 20100525
  Serious: Yes (Life-Threatening)
  Sender: FDA-Public Use
  Company Number: None

PATIENT
  Sex: Male

DRUGS (1)
  1. PHENYTONIN 100MG 1 TAB QID [Suspect]
     Indication: CONVULSION
     Dosage: 1 TAB PO QID
     Route: 048

REACTIONS (2)
  - SWELLING [None]
  - URTICARIA [None]
